FAERS Safety Report 5115229-7 (Version None)
Quarter: 2006Q3

REPORT INFORMATION
  Report Type: 
  Country: None (occurrence: None)
  Receive Date: 20060922
  Receipt Date: 20060830
  Transmission Date: 20061208
  Serious: Yes (Other)
  Sender: FDA-Public Use
  Company Number: 2006108514

PATIENT
  Age: 52 Year
  Sex: Female
  Weight: 59.4212 kg

DRUGS (2)
  1. CELEBREX [Suspect]
     Indication: BACK DISORDER
     Dosage: 1 IN 1 D
  2. BEXTRA [Suspect]
     Indication: BACK DISORDER
     Dosage: 10 MG (10 MG, 1 IN 1 D)
     Dates: start: 20030817

REACTIONS (1)
  - CEREBROVASCULAR ACCIDENT [None]
